FAERS Safety Report 23408073 (Version 1)
Quarter: 2024Q1

REPORT INFORMATION
  Report Type: Spontaneous
  Country: PT (occurrence: PT)
  Receive Date: 20240117
  Receipt Date: 20240117
  Transmission Date: 20240410
  Serious: Yes (Other)
  Sender: FDA-Public Use
  Company Number: PT-MLMSERVICE-20240101-4746829-1

PATIENT
  Age: 74 Year
  Sex: Male

DRUGS (4)
  1. METHOTREXATE [Suspect]
     Active Substance: METHOTREXATE
     Indication: Pulmonary sarcoidosis
  2. DEFLAZACORT [Suspect]
     Active Substance: DEFLAZACORT
     Indication: Pulmonary sarcoidosis
  3. DEFLAZACORT [Suspect]
     Active Substance: DEFLAZACORT
     Indication: Asthma
  4. METHOTREXATE [Suspect]
     Active Substance: METHOTREXATE
     Indication: Asthma

REACTIONS (4)
  - Leishmaniasis [Unknown]
  - Staphylococcal infection [Unknown]
  - Botryomycosis [Unknown]
  - Off label use [Unknown]
